FAERS Safety Report 5495781-2 (Version None)
Quarter: 2007Q4

REPORT INFORMATION
  Report Type: 
  Country: None (occurrence: None)
  Receive Date: 20071025
  Receipt Date: 20070102
  Transmission Date: 20080405
  Serious: No
  Sender: FDA-Public Use
  Company Number: A0624237A

PATIENT
  Age: 76 Year
  Sex: Male

DRUGS (5)
  1. ADVAIR DISKUS 100/50 [Suspect]
     Indication: ASTHMA
     Dosage: 1PUFF PER DAY
     Route: 055
     Dates: start: 20050701
  2. LASIX [Concomitant]
     Dosage: 20MG ALTERNATE DAYS
     Route: 048
  3. SINGULAIR [Concomitant]
  4. METOPROLOL SUCCINATE EXTENDED RELEASE [Concomitant]
     Route: 048
  5. ALLOPURINOL [Concomitant]
     Route: 048

REACTIONS (1)
  - DYSPHONIA [None]
